FAERS Safety Report 13035803 (Version 3)
Quarter: 2017Q1

REPORT INFORMATION
  Report Type: Spontaneous
  Country: FR (occurrence: FR)
  Receive Date: 20161216
  Receipt Date: 20170109
  Transmission Date: 20170428
  Serious: Yes (Other)
  Sender: FDA-Public Use
  Company Number: FR-IPSEN BIOPHARMACEUTICALS, INC.-2016-07376

PATIENT
  Age: 22 Year
  Sex: Female

DRUGS (1)
  1. DYSPORT 500 UNITES SPEYWOOD [Suspect]
     Active Substance: ABOBOTULINUMTOXINA
     Indication: HEMIPLEGIA
     Dosage: 1390 IU
     Route: 030
     Dates: start: 20160817, end: 20160817

REACTIONS (7)
  - Diplopia [Recovered/Resolved]
  - Condition aggravated [Recovered/Resolved]
  - Neuromuscular toxicity [Recovering/Resolving]
  - Dysphagia [Recovered/Resolved]
  - Condition aggravated [Recovered/Resolved]
  - Muscular weakness [Recovering/Resolving]
  - Fatigue [Recovering/Resolving]

NARRATIVE: CASE EVENT DATE: 201608
